FAERS Safety Report 8190300-4 (Version None)
Quarter: 2012Q1

REPORT INFORMATION
  Report Type: 
  Country: None (occurrence: None)
  Receive Date: 20120305
  Receipt Date: 20120227
  Transmission Date: 20120608
  Serious: Yes (Other)
  Sender: FDA-Public Use
  Company Number: 2012MA002649

PATIENT
  Age: 47 Year
  Sex: Female

DRUGS (5)
  1. MICONAZOLE NITRATE [Suspect]
     Indication: PRODUCT USED FOR UNKNOWN INDICATION
     Dosage: ;PO
     Route: 048
  2. WARFARIN SODIUM [Suspect]
     Dosage: 4 MG;QD;
  3. FUROSEMIDE [Concomitant]
  4. SPIRONOLACTONE [Concomitant]
  5. RANITIDINE [Concomitant]

REACTIONS (3)
  - EPISTAXIS [None]
  - DRUG INTERACTION [None]
  - INTERNATIONAL NORMALISED RATIO INCREASED [None]
